FAERS Safety Report 4744989-X (Version None)
Quarter: 2005Q3

REPORT INFORMATION
  Report Type: 
  Country: None (occurrence: None)
  Receive Date: 20050811
  Receipt Date: 20050803
  Transmission Date: 20060218
  Serious: Yes (Death, Life-Threatening, Hospitalization)
  Sender: FDA-Public Use
  Company Number: HQWYE836422DEC03

PATIENT
  Age: 58 Year
  Sex: Male
  Weight: 96.25 kg

DRUGS (12)
  1. MYLOTARG [Suspect]
     Indication: ACUTE MYELOID LEUKAEMIA
     Dosage: 18 MG 1X PER 1 DAY, INTRAVENOUS
     Route: 042
     Dates: start: 20030709, end: 20030709
  2. MYLOTARG [Suspect]
     Indication: ACUTE MYELOID LEUKAEMIA
     Dosage: 18 MG 1X PER 1 DAY, INTRAVENOUS
     Route: 042
     Dates: start: 20030722, end: 20030722
  3. AVANDIA [Concomitant]
  4. SPORANOX [Concomitant]
  5. CIPRO [Concomitant]
  6. KEFLEX [Concomitant]
  7. VALCYTE [Concomitant]
  8. FOLIC ACID [Concomitant]
  9. DIGOXIN [Concomitant]
  10. LOPRESSOR [Concomitant]
  11. POTASSIUM CHLORIDE [Concomitant]
  12. ALLOPURINOL [Concomitant]

REACTIONS (9)
  - ACUTE MYELOID LEUKAEMIA [None]
  - ASPARTATE AMINOTRANSFERASE INCREASED [None]
  - BETA HAEMOLYTIC STREPTOCOCCAL INFECTION [None]
  - BLOOD ALKALINE PHOSPHATASE INCREASED [None]
  - BLOOD BILIRUBIN INCREASED [None]
  - BLOOD CULTURE POSITIVE [None]
  - MALIGNANT NEOPLASM PROGRESSION [None]
  - OEDEMA PERIPHERAL [None]
  - SEPSIS [None]
